FAERS Safety Report 7546571-8 (Version None)
Quarter: 2011Q2

REPORT INFORMATION
  Report Type: 
  Country: None (occurrence: None)
  Receive Date: 20110607
  Receipt Date: 20110525
  Transmission Date: 20111010
  Serious: Yes (Death)
  Sender: FDA-Public Use
  Company Number: 2011-1630

PATIENT
  Age: 76 Year
  Sex: Female

DRUGS (1)
  1. SOMATULINE DEPOT [Suspect]
     Indication: CARCINOID TUMOUR
     Dosage: 120MG (120 MG, 1 IN 21 D), INTRAMUSUCLAR
     Dates: start: 20100401, end: 20110512

REACTIONS (5)
  - CARCINOID TUMOUR [None]
  - INAPPROPRIATE SCHEDULE OF DRUG ADMINISTRATION [None]
  - BEDRIDDEN [None]
  - NEOPLASM PROGRESSION [None]
  - GENERAL PHYSICAL HEALTH DETERIORATION [None]
